FAERS Safety Report 20862943 (Version 1)
Quarter: 2022Q2

REPORT INFORMATION
  Report Type: Spontaneous
  Country: ES (occurrence: ES)
  Receive Date: 20220523
  Receipt Date: 20220523
  Transmission Date: 20220721
  Serious: Yes (Other)
  Sender: FDA-Public Use
  Company Number: ES-FERRINGPH-2022FE02178

PATIENT
  Sex: Male

DRUGS (4)
  1. MESALAMINE [Suspect]
     Active Substance: MESALAMINE
     Indication: Colitis ulcerative
     Dosage: 4 G, QD
     Dates: start: 201901, end: 202101
  2. MESALAMINE [Suspect]
     Active Substance: MESALAMINE
     Dosage: 2 G, QD
     Dates: start: 201404, end: 201901
  3. ENALAPRIL [Concomitant]
     Active Substance: ENALAPRIL
  4. CORTICOSTEROID NOS [Concomitant]
     Active Substance: CORTICOSTEROID NOS
     Indication: Colitis ulcerative
     Dosage: DESCENDING REGIMEN
     Dates: start: 201404

REACTIONS (2)
  - Leukopenia [Recovered/Resolved]
  - Colitis ulcerative [Recovered/Resolved]

NARRATIVE: CASE EVENT DATE: 20190101
